FAERS Safety Report 6173760-X (Version None)
Quarter: 2009Q2

REPORT INFORMATION
  Report Type: 
  Country: None (occurrence: None)
  Receive Date: 20090430
  Receipt Date: 20090422
  Transmission Date: 20091009
  Serious: Yes (Other)
  Sender: FDA-Public Use
  Company Number: US-AVENTIS-200912218EU

PATIENT
  Age: 69 Year
  Sex: Female

DRUGS (6)
  1. ALUMINIUM HYDROXIDE W/MAGNESIUM TRISILICATE [Suspect]
     Dosage: DOSE: UNK
  2. SERETIDE [Suspect]
     Indication: ASTHMA
     Dosage: DOSE: 2 PUFFS
     Route: 055
  3. VENTOLIN [Suspect]
     Indication: ASTHMA
     Route: 055
  4. BENDROFLUMETHIAZIDE [Suspect]
     Indication: BLOOD PRESSURE
     Route: 048
  5. OMEPRAZOLE [Suspect]
     Indication: HIATUS HERNIA
     Route: 048
  6. ACETAMINOPHEN W/ CODEINE [Suspect]
     Dosage: DOSE: UNK

REACTIONS (1)
  - BREAST CANCER [None]
